FAERS Safety Report 7280470-4 (Version None)
Quarter: 2011Q1

REPORT INFORMATION
  Report Type: 
  Country: None (occurrence: None)
  Receive Date: 20110208
  Receipt Date: 20110128
  Transmission Date: 20110831
  Serious: Yes (Hospitalization)
  Sender: FDA-Public Use
  Company Number: HU-ROCHE-756670

PATIENT
  Sex: Male
  Weight: 83 kg

DRUGS (5)
  1. OSELTAMIVIR [Suspect]
     Indication: INFLUENZA
     Dosage: DOSE BLINDED
     Route: 042
     Dates: start: 20110125, end: 20110127
  2. CLARITHROMYCIN [Concomitant]
     Dates: start: 20110124, end: 20110127
  3. ALPRAZOLAM [Concomitant]
     Dates: start: 20110124, end: 20110124
  4. SODIUM CHLORIDE [Concomitant]
     Dosage: DRUG: PHYSIOLOGIC (0.9 %) NACL INFUSION
     Dates: start: 20110124, end: 20110124
  5. METOCLOPRAMIDE [Concomitant]
     Dates: start: 20110124, end: 20110124

REACTIONS (1)
  - BRADYARRHYTHMIA [None]
